FAERS Safety Report 13072504 (Version 2)
Quarter: 2017Q1

REPORT INFORMATION
  Report Type: Spontaneous
  Country: US (occurrence: US)
  Receive Date: 20161229
  Receipt Date: 20170123
  Transmission Date: 20170428
  Serious: No
  Sender: FDA-Public Use
  Company Number: US-GILEAD-2016-0251040

PATIENT
  Age: 36 Year
  Sex: Female
  Weight: 77 kg

DRUGS (9)
  1. CLARITIN [Concomitant]
     Active Substance: LORATADINE
     Indication: RASH
     Dosage: 10 MG, UNK
     Route: 048
     Dates: start: 20160906
  2. AZITHROMYCIN ANHYDROUS. [Concomitant]
     Active Substance: AZITHROMYCIN ANHYDROUS
     Indication: MYCOBACTERIUM AVIUM COMPLEX INFECTION
     Dosage: 600 MG, UNK
     Route: 048
     Dates: start: 20141104
  3. HYDROCORTISONE. [Concomitant]
     Active Substance: HYDROCORTISONE
     Indication: RASH
     Dosage: 2.5 %, UNK
     Route: 061
     Dates: start: 20160909
  4. GENVOYA [Suspect]
     Active Substance: COBICISTAT\ELVITEGRAVIR\EMTRICITABINE\TENOFOVIR ALAFENAMIDE FUMARATE
     Indication: PRODUCT USED FOR UNKNOWN INDICATION
     Route: 065
  5. CLOBETASOL [Concomitant]
     Active Substance: CLOBETASOL
     Indication: RASH
     Dosage: 0.05 %, UNK
     Route: 061
     Dates: start: 20160229
  6. TRIAMCINOLONE [Concomitant]
     Active Substance: TRIAMCINOLONE
     Indication: RASH
     Dosage: 0.1 %, UNK
     Route: 061
     Dates: start: 20151022
  7. DOCUSATE [Concomitant]
     Active Substance: DOCUSATE
     Indication: CONSTIPATION
     Dosage: 100 MG, UNK
     Route: 048
     Dates: start: 20151014
  8. IBUPROFEN. [Concomitant]
     Active Substance: IBUPROFEN
     Indication: PAIN
     Dosage: 600 MG, UNK
     Route: 048
     Dates: start: 20160518
  9. DIPHENHYDRAMINE. [Concomitant]
     Active Substance: DIPHENHYDRAMINE
     Indication: RASH
     Dosage: 25 MG, UNK
     Route: 048
     Dates: start: 20160906

REACTIONS (2)
  - Dyspnoea [Recovered/Resolved]
  - Tachycardia [Recovered/Resolved]

NARRATIVE: CASE EVENT DATE: 20161219
